FAERS Safety Report 8266686-9 (Version None)
Quarter: 2012Q2

REPORT INFORMATION
  Report Type: 
  Country: None (occurrence: None)
  Receive Date: 20120408
  Receipt Date: 20120326
  Transmission Date: 20120825
  Serious: Yes (Life-Threatening, Hospitalization)
  Sender: FDA-Public Use
  Company Number: US-BRISTOL-MYERS SQUIBB COMPANY-16475238

PATIENT
  Age: 49 Year
  Sex: Male
  Weight: 74 kg

DRUGS (6)
  1. GEMFIBROZIL [Concomitant]
  2. VANCOMYCIN [Concomitant]
  3. GLYBURIDE [Suspect]
  4. VARDENAFIL HYDROCHLORIDE (LEVITRA) [Concomitant]
  5. METFORMIN HCL [Suspect]
  6. LISINOPRIL [Concomitant]

REACTIONS (14)
  - DEAFNESS NEUROSENSORY [None]
  - SUICIDE ATTEMPT [None]
  - RENAL FAILURE ACUTE [None]
  - VERTIGO [None]
  - CEREBRAL ISCHAEMIA [None]
  - HYPERGLYCAEMIA [None]
  - STREPTOCOCCUS TEST POSITIVE [None]
  - INTENTIONAL OVERDOSE [None]
  - HYPOTENSION [None]
  - STAPHYLOCOCCUS TEST POSITIVE [None]
  - OTITIS EXTERNA [None]
  - LACTIC ACIDOSIS [None]
  - THROMBOCYTOPENIA [None]
  - BLOOD CULTURE POSITIVE [None]
